FAERS Safety Report 8917799 (Version 2)
Quarter: 2012Q4

REPORT INFORMATION
  Report Type: 
  Country: US (occurrence: US)
  Receive Date: 20121120
  Receipt Date: 20121220
  Transmission Date: 20130627
  Serious: Yes (Death, Hospitalization, Other)
  Sender: FDA-Public Use
  Company Number: US-BRISTOL-MYERS SQUIBB COMPANY-17115916

PATIENT
  Age: 78 Year
  Sex: Female

DRUGS (19)
  1. SPRYCEL [Suspect]
     Indication: CHRONIC MYELOID LEUKAEMIA
     Dates: start: 201002, end: 201211
  2. CIPROFLOXACIN [Interacting]
     Indication: URINARY TRACT INFECTION
     Dates: start: 201210, end: 201211
  3. MACRODANTIN [Interacting]
     Indication: URINARY TRACT INFECTION
     Dates: start: 201210, end: 201211
  4. VERAPAMIL [Concomitant]
     Indication: CHRONIC MYELOID LEUKAEMIA
     Route: 048
     Dates: start: 201002, end: 201211
  5. XANAX [Concomitant]
  6. VITAMIN D [Concomitant]
  7. MAGNESIUM OXIDE [Concomitant]
  8. LASIX [Concomitant]
  9. MAXZIDE [Concomitant]
  10. SIMETHICONE [Concomitant]
  11. ZYRTEC [Concomitant]
  12. ALBUTEROL [Concomitant]
  13. TENORMIN [Concomitant]
  14. LOMOTIL [Concomitant]
  15. NEURONTIN [Concomitant]
  16. PROTONIX [Concomitant]
  17. ZOCOR [Concomitant]
  18. POTASSIUM [Concomitant]
  19. VERAPAMIL [Concomitant]

REACTIONS (7)
  - Cardiac failure congestive [Fatal]
  - Urinary tract infection [Fatal]
  - Renal failure acute [Fatal]
  - Dehydration [Fatal]
  - Anaemia [Fatal]
  - Drug interaction [Fatal]
  - Pleural effusion [Unknown]
